FAERS Safety Report 22110583 (Version 6)
Quarter: 2023Q4

REPORT INFORMATION
  Report Type: Report from Study
  Country: US (occurrence: US)
  Receive Date: 20230317
  Receipt Date: 20231109
  Transmission Date: 20240110
  Serious: Yes (Hospitalization)
  Sender: FDA-Public Use
  Company Number: US-TEVA-2023-US-2868182

PATIENT
  Age: 61 Year
  Sex: Female
  Weight: 61.2 kg

DRUGS (19)
  1. LEUCOVORIN [Suspect]
     Active Substance: LEUCOVORIN\LEUCOVORIN CALCIUM
     Indication: Pancreatic carcinoma metastatic
     Dosage: 700 MG, EVERY 2 WEEKS
     Route: 042
     Dates: start: 20221108, end: 20230214
  2. LEUCOVORIN [Suspect]
     Active Substance: LEUCOVORIN\LEUCOVORIN CALCIUM
     Dosage: 700MG DAY 1 AND DAY 15 OF EACH 28 CYCLE
     Route: 042
     Dates: start: 20230314
  3. IRINOTECAN [Suspect]
     Active Substance: IRINOTECAN
     Indication: Pancreatic carcinoma metastatic
     Dosage: 262 MG, EVERY 2 WEEKS
     Route: 042
     Dates: start: 20221108, end: 20230214
  4. IRINOTECAN [Suspect]
     Active Substance: IRINOTECAN
     Dosage: 262 MG DAY 1 AND DAY 15 OF EACH 28 DAY CYCLE
     Route: 042
     Dates: start: 20230314
  5. OXALIPLATIN [Suspect]
     Active Substance: OXALIPLATIN
     Indication: Pancreatic carcinoma metastatic
     Dosage: 150 MG, EVERY 2 WEEKS
     Route: 042
     Dates: start: 20221108, end: 20230214
  6. OXALIPLATIN [Suspect]
     Active Substance: OXALIPLATIN
     Dosage: 150MG DAY 1 AND DAY 15  OF EACH 28 DAY CYCLE
     Route: 042
     Dates: start: 20230314
  7. FLUOROURACIL [Suspect]
     Active Substance: FLUOROURACIL
     Indication: Pancreatic carcinoma metastatic
     Route: 042
     Dates: start: 20221108, end: 20230214
  8. FLUOROURACIL [Suspect]
     Active Substance: FLUOROURACIL
     Dosage: 4200MG DAY 1, 3, 15 AND 17 OF EACH 28 DAY CYCLE
     Route: 042
     Dates: start: 20230314
  9. BUDIGALIMAB [Suspect]
     Active Substance: BUDIGALIMAB
     Indication: Pancreatic carcinoma metastatic
     Dosage: 500 MG EVERY 4 WEEKS
     Route: 042
     Dates: start: 20221110, end: 20230202
  10. BUDIGALIMAB [Suspect]
     Active Substance: BUDIGALIMAB
     Dosage: 500 MG EVERY 4 WEEKS
     Route: 042
     Dates: start: 20230316
  11. LOPERAMIDE [Concomitant]
     Active Substance: LOPERAMIDE
     Indication: Prophylaxis against diarrhoea
     Dosage: 2 MG, 6/DAYS
     Dates: start: 20221103
  12. ATIVAN [Concomitant]
     Active Substance: LORAZEPAM
     Indication: Nausea
     Dosage: 0.5 MG, EVERY 6 HOURS
     Route: 065
     Dates: start: 20221103
  13. ATIVAN [Concomitant]
     Active Substance: LORAZEPAM
     Indication: Anxiety
  14. ZOFRAN [Concomitant]
     Active Substance: ONDANSETRON HYDROCHLORIDE
     Indication: Prophylaxis of nausea and vomiting
     Dosage: 24 MILLIGRAM DAILY;
     Dates: start: 20221103
  15. ZOFRAN [Concomitant]
     Active Substance: ONDANSETRON HYDROCHLORIDE
     Indication: Prophylaxis of nausea and vomiting
  16. COMPAZINE [Concomitant]
     Active Substance: PROCHLORPERAZINE MALEATE
     Indication: Nausea
     Dosage: 30 MILLIGRAM DAILY;
     Dates: start: 20221110
  17. COMPAZINE [Concomitant]
     Active Substance: PROCHLORPERAZINE MALEATE
     Indication: Vomiting
  18. BENADRYL [Concomitant]
     Active Substance: DIPHENHYDRAMINE HYDROCHLORIDE
     Indication: Premedication
     Dosage: 25 MG TOTAL
     Dates: start: 20221207
  19. PEPCID [Concomitant]
     Active Substance: FAMOTIDINE
     Indication: Premedication
     Dosage: 20 MG TOTAL
     Dates: start: 20221207

REACTIONS (1)
  - Epiglottitis [Recovered/Resolved]

NARRATIVE: CASE EVENT DATE: 20230228
